FAERS Safety Report 20660301 (Version 1)
Quarter: 2022Q1

REPORT INFORMATION
  Report Type: Spontaneous
  Country: US (occurrence: None)
  Receive Date: 20220331
  Receipt Date: 20220331
  Transmission Date: 20220424
  Serious: Yes (Death, Other)
  Sender: FDA-Public Use
  Company Number: US-Fresenius Kabi-FK202203787

PATIENT
  Age: 42 Year
  Sex: Male

DRUGS (4)
  1. DOXORUBICIN [Suspect]
     Active Substance: DOXORUBICIN
     Indication: Anaplastic large-cell lymphoma
     Dosage: 6 CYCLES OF CHOP THERAPY
  2. CYCLOPHOSPHAMIDE [Suspect]
     Active Substance: CYCLOPHOSPHAMIDE
     Indication: Anaplastic large-cell lymphoma
     Dosage: 6 CYCLES OF CHOP THERAPY
  3. VINCRISTINE [Suspect]
     Active Substance: VINCRISTINE
     Indication: Anaplastic large-cell lymphoma
     Dosage: 6 CYCLES OF CHOP THERAPY
  4. PREDNISONE [Suspect]
     Active Substance: PREDNISONE
     Indication: Anaplastic large-cell lymphoma
     Dosage: 6 CYCLES OF CHOP THERAPY

REACTIONS (1)
  - Respiratory failure [Fatal]
